FAERS Safety Report 10111437 (Version 2)
Quarter: 2014Q2

REPORT INFORMATION
  Report Type: Report from Study
  Country: US (occurrence: US)
  Receive Date: 20140425
  Receipt Date: 20140522
  Transmission Date: 20141212
  Serious: Yes (Hospitalization, Other)
  Sender: FDA-Public Use
  Company Number: US-SA-2014SA050702

PATIENT
  Age: 51 Year
  Sex: Male

DRUGS (13)
  1. LANTUS [Suspect]
     Indication: TYPE 2 DIABETES MELLITUS
     Dosage: 5, 6 OR 9YEARS AGO?FORM: VIALS DOSE:21 UNIT(S)
     Route: 058
     Dates: start: 20040801
  2. ALPRAZOLAM [Concomitant]
     Route: 048
     Dates: start: 20130304
  3. PERCOCET [Concomitant]
     Indication: PAIN
     Dosage: 325 MG-5 MG
     Route: 048
     Dates: start: 20120829
  4. POTASSIUM CHLORIDE [Concomitant]
     Route: 048
     Dates: start: 20131209
  5. SIMVASTATIN [Concomitant]
     Route: 048
     Dates: start: 20120829
  6. CALCIUM CARBONATE [Concomitant]
     Route: 048
  7. MULTIVITAMIN AND MINERAL SUPPLEMENT [Concomitant]
     Route: 048
  8. FISH OIL [Concomitant]
     Route: 048
  9. ASPIRIN [Concomitant]
     Route: 048
  10. LISINOPRIL [Concomitant]
     Route: 048
  11. VITAMIN D3 [Concomitant]
     Route: 048
  12. MAGNESIUM [Concomitant]
     Route: 048
  13. LEVAQUIN [Concomitant]
     Route: 048

REACTIONS (5)
  - Renal failure [Recovered/Resolved]
  - Cardiac disorder [Recovered/Resolved]
  - Diabetic ketoacidosis [Recovered/Resolved]
  - Hyperglycaemia [Recovered/Resolved]
  - Drug dose omission [Unknown]
